FAERS Safety Report 10581805 (Version 1)
Quarter: 2014Q4

REPORT INFORMATION
  Report Type: Spontaneous
  Country: DE (occurrence: CH)
  Receive Date: 20141113
  Receipt Date: 20141113
  Transmission Date: 20150529
  Serious: Yes (Hospitalization)
  Sender: FDA-Public Use
  Company Number: DE-ACTELION-A-US2014-108114

PATIENT
  Sex: Male

DRUGS (2)
  1. TADALAFIL [Concomitant]
     Active Substance: TADALAFIL
  2. VENTAVIS [Suspect]
     Active Substance: ILOPROST
     Indication: PULMONARY HYPERTENSION
     Dosage: 50 MCG, QD
     Route: 055

REACTIONS (4)
  - Nausea [Recovered/Resolved]
  - Flushing [Recovered/Resolved]
  - Orthostatic intolerance [Recovered/Resolved]
  - Dizziness [Recovered/Resolved]

NARRATIVE: CASE EVENT DATE: 201410
